FAERS Safety Report 12290985 (Version 4)
Quarter: 2016Q2

REPORT INFORMATION
  Report Type: Other
  Country: US (occurrence: US)
  Receive Date: 20160421
  Receipt Date: 20160526
  Transmission Date: 20160815
  Serious: Yes (Other)
  Sender: FDA-Public Use
  Company Number: US-ACORDA-ACO_123181_2016

PATIENT
  Sex: Female
  Weight: 61.22 kg

DRUGS (8)
  1. AMPYRA [Suspect]
     Active Substance: DALFAMPRIDINE
     Indication: MULTIPLE SCLEROSIS
     Dosage: 10 MG, BID
     Route: 048
     Dates: end: 20160307
  2. AMPYRA [Suspect]
     Active Substance: DALFAMPRIDINE
     Indication: GAIT DISTURBANCE
     Dosage: 10 MG, QD
     Route: 048
     Dates: end: 201603
  3. VITAMIN B12 [Concomitant]
     Active Substance: CYANOCOBALAMIN
     Indication: PRODUCT USED FOR UNKNOWN INDICATION
     Dosage: 2000 MG, QD
     Route: 065
  4. DETROL LA [Concomitant]
     Active Substance: TOLTERODINE TARTRATE
     Indication: PRODUCT USED FOR UNKNOWN INDICATION
     Dosage: 4 MG, QD
     Route: 065
  5. TECFIDERA [Concomitant]
     Active Substance: DIMETHYL FUMARATE
     Indication: PRODUCT USED FOR UNKNOWN INDICATION
     Dosage: 240 MG, BID
     Route: 065
  6. PROLIA [Concomitant]
     Active Substance: DENOSUMAB
     Indication: PRODUCT USED FOR UNKNOWN INDICATION
     Dosage: UNK, YEARLY INFUSION
     Route: 065
  7. VITAMIN D [Concomitant]
     Active Substance: CHOLECALCIFEROL
     Indication: PRODUCT USED FOR UNKNOWN INDICATION
     Dosage: 2000 IU, QD
     Route: 065
  8. IBUPROFEN. [Concomitant]
     Active Substance: IBUPROFEN
     Indication: PRODUCT USED FOR UNKNOWN INDICATION
     Dosage: 200 MG, QD
     Route: 065

REACTIONS (12)
  - Breast cancer [Unknown]
  - Therapeutic response unexpected [Unknown]
  - Asthenia [Unknown]
  - Balance disorder [Not Recovered/Not Resolved]
  - Condition aggravated [Not Recovered/Not Resolved]
  - Fatigue [Not Recovered/Not Resolved]
  - Incorrect dose administered [Unknown]
  - Condition aggravated [Not Recovered/Not Resolved]
  - Peroneal nerve palsy [Not Recovered/Not Resolved]
  - General physical health deterioration [Unknown]
  - Gait disturbance [Not Recovered/Not Resolved]
  - Therapy cessation [Unknown]

NARRATIVE: CASE EVENT DATE: 2014
